FAERS Safety Report 9840875 (Version 1)
Quarter: 2014Q1

REPORT INFORMATION
  Report Type: Spontaneous
  Country: GB (occurrence: GB)
  Receive Date: 20140124
  Receipt Date: 20140124
  Transmission Date: 20141002
  Serious: Yes (Other)
  Sender: FDA-Public Use
  Company Number: GB-TEVA-456881ISR

PATIENT
  Age: 65 Year
  Sex: Male
  Weight: 73.47 kg

DRUGS (2)
  1. SIMVASTATIN [Suspect]
     Indication: HYPERCHOLESTEROLAEMIA
     Dosage: 20 MILLIGRAM DAILY;
     Route: 048
     Dates: start: 20131018
  2. LISINOPRIL [Concomitant]

REACTIONS (4)
  - Constipation [Recovered/Resolved]
  - Discomfort [Recovered/Resolved]
  - Hyperhidrosis [Recovered/Resolved]
  - Feeling hot [Recovered/Resolved]
